FAERS Safety Report 8249561-5 (Version None)
Quarter: 2012Q2

REPORT INFORMATION
  Report Type: 
  Country: None (occurrence: None)
  Receive Date: 20120402
  Receipt Date: 20120326
  Transmission Date: 20120825
  Serious: Yes (Death, Other)
  Sender: FDA-Public Use
  Company Number: US-ASTELLAS-2012US003157

PATIENT
  Age: 52 Year
  Sex: Male

DRUGS (5)
  1. PROGRAF [Suspect]
     Dosage: UNK
     Route: 065
  2. FLUDARABINE PHOSPHATE [Concomitant]
     Indication: STEM CELL TRANSPLANT
     Dosage: 24 MG/M2, X5
     Route: 065
  3. ALEMTUZUMAB [Concomitant]
     Indication: STEM CELL TRANSPLANT
     Dosage: 20 MG, X5
     Route: 065
  4. PROGRAF [Suspect]
     Indication: PRODUCT USED FOR UNKNOWN INDICATION
     Dosage: UNK
     Route: 065
  5. MELPHALAN HYDROCHLORIDE [Concomitant]
     Indication: STEM CELL TRANSPLANT
     Dosage: 100 MG/M2, UNKNOWN/D
     Route: 065

REACTIONS (6)
  - CEREBRAL HAEMORRHAGE [None]
  - LETHARGY [None]
  - MICROANGIOPATHY [None]
  - MENTAL STATUS CHANGES [None]
  - HYPERTENSION [None]
  - POSTERIOR REVERSIBLE ENCEPHALOPATHY SYNDROME [None]
